FAERS Safety Report 7512350-0 (Version None)
Quarter: 2011Q2

REPORT INFORMATION
  Report Type: 
  Country: None (occurrence: None)
  Receive Date: 20110525
  Receipt Date: 20110525
  Transmission Date: 20111010
  Serious: Yes (Other)
  Sender: FDA-Public Use
  Company Number: None

PATIENT
  Age: 67 Year
  Sex: Female
  Weight: 63.5036 kg

DRUGS (2)
  1. ALPRAZOLAM [Suspect]
     Indication: RASH
     Dates: start: 20100116, end: 20100222
  2. METOPROLOL 25 MG X 2 A DAY SANDOZ [Suspect]
     Dosage: 2 WEEKS OR LESS
     Dates: start: 20070328, end: 20070407

REACTIONS (5)
  - DRUG INEFFECTIVE [None]
  - DEATH OF RELATIVE [None]
  - DRUG HYPERSENSITIVITY [None]
  - DEPRESSION [None]
  - SKIN CANCER [None]
